FAERS Safety Report 11330753 (Version 1)
Quarter: 2015Q3

REPORT INFORMATION
  Report Type: Spontaneous
  Country: US (occurrence: US)
  Receive Date: 20150803
  Receipt Date: 20150803
  Transmission Date: 20151125
  Serious: No
  Sender: FDA-Public Use
  Company Number: US-GLAXOSMITHKLINE-US2015GSK104157

PATIENT
  Sex: Female

DRUGS (15)
  1. VOTRIENT [Suspect]
     Active Substance: PAZOPANIB HYDROCHLORIDE
     Indication: PRODUCT USED FOR UNKNOWN INDICATION
     Dosage: 800 MG, QD
     Route: 048
     Dates: start: 20140527
  2. SANCUSO [Concomitant]
     Active Substance: GRANISETRON
  3. METFORMIN [Concomitant]
     Active Substance: METFORMIN HYDROCHLORIDE
  4. AMLODIPINE BESYLATE. [Concomitant]
     Active Substance: AMLODIPINE BESYLATE
  5. PROCHLORPERAZINE. [Concomitant]
     Active Substance: PROCHLORPERAZINE
  6. INVOKANA [Concomitant]
     Active Substance: CANAGLIFLOZIN
  7. ONDANSETRON [Concomitant]
     Active Substance: ONDANSETRON
  8. GLIMEPIRIDE. [Concomitant]
     Active Substance: GLIMEPIRIDE
  9. JANUVIA [Concomitant]
     Active Substance: SITAGLIPTIN PHOSPHATE
  10. LORAZEPAM. [Concomitant]
     Active Substance: LORAZEPAM
  11. LANSOPRAZOLE. [Concomitant]
     Active Substance: LANSOPRAZOLE
  12. GEMFIBROZIL. [Concomitant]
     Active Substance: GEMFIBROZIL
  13. CARVEDILOL. [Concomitant]
     Active Substance: CARVEDILOL
  14. MELOXICAM. [Concomitant]
     Active Substance: MELOXICAM
  15. OMEPRAZOLE. [Concomitant]
     Active Substance: OMEPRAZOLE

REACTIONS (1)
  - Nausea [Not Recovered/Not Resolved]
